FAERS Safety Report 20460578 (Version 1)
Quarter: 2022Q1

REPORT INFORMATION
  Report Type: Report from Study
  Country: US (occurrence: US)
  Receive Date: 20220211
  Receipt Date: 20220211
  Transmission Date: 20220423
  Serious: Yes (Hospitalization)
  Sender: FDA-Public Use
  Company Number: US-JAZZ-2021-US-013675

PATIENT
  Sex: Female
  Weight: 52.5 kg

DRUGS (12)
  1. ASPARAGINASE ERWINIA CHRYSANTHEMI [Suspect]
     Active Substance: ASPARAGINASE ERWINIA CHRYSANTHEMI
     Indication: Acute lymphocytic leukaemia
     Dosage: 52 MILLIGRAM, 3XWEEKLY PER 2W COURSE
     Route: 030
     Dates: start: 20201118, end: 20201130
  2. ASPARAGINASE ERWINIA CHRYSANTHEMI [Suspect]
     Active Substance: ASPARAGINASE ERWINIA CHRYSANTHEMI
     Dosage: 3XWEEKLY PER 2W COURSE
     Route: 030
     Dates: start: 20200324, end: 20200324
  3. ASPARAGINASE ERWINIA CHRYSANTHEMI [Suspect]
     Active Substance: ASPARAGINASE ERWINIA CHRYSANTHEMI
     Dosage: 3XWEEKLY PER 2W COURSE
     Route: 030
     Dates: start: 20210326, end: 20210405
  4. ASPARAGINASE ERWINIA CHRYSANTHEMI [Suspect]
     Active Substance: ASPARAGINASE ERWINIA CHRYSANTHEMI
     Dosage: 54 MILLIGRAM, 3XWEEKLY PER 2W COURSE
     Route: 030
     Dates: end: 20210507
  5. VITAMINS [Concomitant]
     Active Substance: VITAMINS
     Dosage: 1 TABLET, QD
     Route: 048
     Dates: start: 20210521
  6. HEPARIN [Concomitant]
     Active Substance: HEPARIN SODIUM
     Dosage: 3 MILLILITER, PRN LINE MAINTENANCE
     Route: 042
     Dates: start: 20210522, end: 20210522
  7. VANCOMYCIN [Concomitant]
     Active Substance: VANCOMYCIN
     Dosage: 125 MILLIGRAM Q6H
     Route: 048
     Dates: start: 20210522, end: 20210528
  8. ONDANSETRON [Concomitant]
     Active Substance: ONDANSETRON
     Dosage: 8 MILLIGRAM, Q8H PRN
     Route: 042
     Dates: start: 20210526, end: 20210526
  9. VINCRISTINE [Concomitant]
     Active Substance: VINCRISTINE
     Dosage: 2 MILLIGRAM, SINGLE
     Route: 042
     Dates: start: 20210526, end: 20210526
  10. METHOTREXATE [Concomitant]
     Active Substance: METHOTREXATE
     Dosage: 145 MILLIGRAM, SINGLE
     Route: 042
     Dates: start: 20210526, end: 20210526
  11. DOCUSATE [Concomitant]
     Active Substance: DOCUSATE
     Dosage: 50 MILLIGRAM, QD
     Route: 048
     Dates: start: 20210526, end: 20210526
  12. LEVETIRACETAM [Concomitant]
     Active Substance: LEVETIRACETAM
     Dosage: 1000 MILLIGRAM, BID
     Route: 048
     Dates: start: 20210526, end: 20210526

REACTIONS (1)
  - Abdominal pain [Recovered/Resolved]

NARRATIVE: CASE EVENT DATE: 20210528
